FAERS Safety Report 15347727 (Version 1)
Quarter: 2018Q3

REPORT INFORMATION
  Report Type: Spontaneous
  Country: CN (occurrence: CN)
  Receive Date: 20180904
  Receipt Date: 20180904
  Transmission Date: 20181010
  Serious: Yes (Hospitalization, Other)
  Sender: FDA-Public Use
  Company Number: CN-PFIZER INC-2018352670

PATIENT
  Age: 87 Year
  Sex: Female
  Weight: 48 kg

DRUGS (2)
  1. XI BI NING [Concomitant]
     Indication: DIZZINESS
     Dosage: 5 MG, 1X/DAY
     Route: 048
     Dates: start: 20180610, end: 20180718
  2. NORVASC [Suspect]
     Active Substance: AMLODIPINE BESYLATE
     Indication: HYPERTENSION
     Dosage: 5 MG, 1X/DAY
     Route: 048
     Dates: start: 20180101, end: 20180718

REACTIONS (6)
  - Oedema peripheral [Recovering/Resolving]
  - Uterine disorder [Unknown]
  - Renal cyst [Unknown]
  - Cholecystitis chronic [Unknown]
  - Arrhythmia [Unknown]
  - Left ventricular hypertrophy [Unknown]

NARRATIVE: CASE EVENT DATE: 20180708
